FAERS Safety Report 9643225 (Version 2)
Quarter: 2013Q4

REPORT INFORMATION
  Report Type: Spontaneous
  Country: RU (occurrence: RU)
  Receive Date: 20131024
  Receipt Date: 20131127
  Transmission Date: 20140711
  Serious: Yes (Other)
  Sender: FDA-Public Use
  Company Number: RU-BAYER-2013-128071

PATIENT
  Age: 30 Year
  Sex: Female
  Weight: 50 kg

DRUGS (3)
  1. YAZ PLUS [Suspect]
     Route: 048
  2. NEUROMULTIVIT [Concomitant]
  3. SUPRADYN [Concomitant]

REACTIONS (3)
  - Cellulitis [Not Recovered/Not Resolved]
  - Weight increased [None]
  - Skin discolouration [None]
